FAERS Safety Report 9723610 (Version 2)
Quarter: 2013Q4

REPORT INFORMATION
  Report Type: Spontaneous
  Country: US (occurrence: US)
  Receive Date: 20131202
  Receipt Date: 20131202
  Transmission Date: 20140711
  Serious: Yes (Death)
  Sender: FDA-Public Use
  Company Number: US-B.I. PHARMACEUTICALS,INC./RIDGEFIELD-2011-BP-05638BP

PATIENT
  Age: 86 Year
  Sex: Female

DRUGS (4)
  1. PRADAXA [Suspect]
     Indication: ATRIAL FIBRILLATION
     Dosage: 300 MG
     Route: 048
     Dates: start: 201102
  2. SYNTHROID [Concomitant]
     Indication: HYPOTHYROIDISM
  3. METOPROLOL [Concomitant]
     Indication: CARDIAC DISCOMFORT
  4. PROTONIX [Concomitant]
     Indication: GASTRIC DISORDER
     Dates: start: 201102

REACTIONS (2)
  - Haemorrhage [Fatal]
  - Dyspepsia [Not Recovered/Not Resolved]
